FAERS Safety Report 9742708 (Version 1)
Quarter: 2013Q4

REPORT INFORMATION
  Report Type: Spontaneous
  Country: US (occurrence: US)
  Receive Date: 20131210
  Receipt Date: 20131210
  Transmission Date: 20140711
  Serious: No
  Sender: FDA-Public Use
  Company Number: US-GILEAD-2009-0025734

PATIENT
  Sex: Male
  Weight: 93.89 kg

DRUGS (14)
  1. LETAIRIS [Suspect]
     Indication: PULMONARY ARTERIAL HYPERTENSION
     Route: 048
     Dates: start: 20091005
  2. PRILOSEC [Concomitant]
  3. ALDACTONE [Concomitant]
  4. LASIX [Concomitant]
  5. GLIPIZIDE [Concomitant]
  6. REVATIO [Concomitant]
  7. LIPITOR [Concomitant]
  8. TRAMADOL [Concomitant]
  9. GABAPENTIN [Concomitant]
  10. METFORMIN [Concomitant]
  11. ADVAIR [Concomitant]
  12. IMODIUM [Concomitant]
  13. SPIRIVA [Concomitant]
  14. WARFARIN [Concomitant]

REACTIONS (1)
  - Swelling [Unknown]
